FAERS Safety Report 17147731 (Version 1)
Quarter: 2019Q4

REPORT INFORMATION
  Report Type: Spontaneous
  Country: GB (occurrence: GB)
  Receive Date: 20191212
  Receipt Date: 20191212
  Transmission Date: 20200122
  Serious: Yes (Life-Threatening, Hospitalization, Other)
  Sender: FDA-Public Use
  Company Number: GB-ELI_LILLY_AND_COMPANY-13354311

PATIENT
  Age: 71 Year
  Sex: Male
  Weight: 90 kg

DRUGS (6)
  1. CETUXIMAB. [Suspect]
     Active Substance: CETUXIMAB
     Indication: COLORECTAL CANCER METASTATIC
     Dosage: 800 MG (400 MG/M2), QD
     Route: 041
     Dates: start: 20051207, end: 20051207
  2. CAPECITABINE. [Concomitant]
     Active Substance: CAPECITABINE
     Indication: METASTASES TO LIVER
  3. DEXAMETHASONE. [Concomitant]
     Active Substance: DEXAMETHASONE
     Indication: PREMEDICATION
     Dosage: 8 MG, QD
     Route: 042
     Dates: start: 20051207
  4. PIRITON [Concomitant]
     Active Substance: CHLORPHENIRAMINE MALEATE
     Indication: PREMEDICATION
     Dosage: 10 MG, QD
     Route: 042
     Dates: start: 20051207
  5. IRINOTECAN [Concomitant]
     Active Substance: IRINOTECAN
     Indication: METASTASES TO LUNG
     Dosage: UNK
     Route: 042
  6. OXALIPLATIN. [Concomitant]
     Active Substance: OXALIPLATIN
     Indication: METASTASES TO LIVER
     Dosage: UNK
     Route: 042

REACTIONS (2)
  - Hypersensitivity [Recovered/Resolved]
  - Anaphylactic reaction [Recovered/Resolved]

NARRATIVE: CASE EVENT DATE: 20051207
